FAERS Safety Report 25153884 (Version 2)
Quarter: 2025Q2

REPORT INFORMATION
  Report Type: Spontaneous
  Country: US (occurrence: US)
  Receive Date: 20250403
  Receipt Date: 20250409
  Transmission Date: 20250716
  Serious: Yes (Other)
  Sender: TAKEDA
  Company Number: US-TAKEDA-2025TUS031968

PATIENT
  Sex: Male
  Weight: 105 kg

DRUGS (13)
  1. VYVANSE [Interacting]
     Active Substance: LISDEXAMFETAMINE DIMESYLATE
     Indication: Attention deficit hyperactivity disorder
     Dosage: 30 MILLIGRAM, QD
  2. VYVANSE [Interacting]
     Active Substance: LISDEXAMFETAMINE DIMESYLATE
  3. VYVANSE [Interacting]
     Active Substance: LISDEXAMFETAMINE DIMESYLATE
  4. VYVANSE [Interacting]
     Active Substance: LISDEXAMFETAMINE DIMESYLATE
  5. LISDEXAMFETAMINE DIMESYLATE [Interacting]
     Active Substance: LISDEXAMFETAMINE DIMESYLATE
     Indication: Attention deficit hyperactivity disorder
     Dosage: 30 MILLIGRAM, QD
     Dates: start: 202411
  6. ADDERALL XR [Suspect]
     Active Substance: AMPHETAMINE ASPARTATE\AMPHETAMINE SULFATE\DEXTROAMPHETAMINE SACCHARATE\DEXTROAMPHETAMINE SULFATE
     Indication: Attention deficit hyperactivity disorder
     Dosage: 30 MILLIGRAM, QD
  7. ADDERALL [Suspect]
     Active Substance: AMPHETAMINE ASPARTATE\AMPHETAMINE SULFATE\DEXTROAMPHETAMINE SACCHARATE\DEXTROAMPHETAMINE SULFATE
     Indication: Product used for unknown indication
  8. ALPRAZOLAM [Interacting]
     Active Substance: ALPRAZOLAM
     Indication: Product used for unknown indication
  9. PHENTERMINE [Interacting]
     Active Substance: PHENTERMINE
     Indication: Product used for unknown indication
  10. LEVOTHYROXINE [Concomitant]
     Active Substance: LEVOTHYROXINE
  11. OMEPRAZOLE [Concomitant]
     Active Substance: OMEPRAZOLE
  12. TAMSULOSIN [Concomitant]
     Active Substance: TAMSULOSIN
  13. VITAMIN D [Concomitant]
     Active Substance: VITAMIN D NOS

REACTIONS (14)
  - Cerebrovascular accident [Unknown]
  - Inflammation [Unknown]
  - Drug intolerance [Unknown]
  - Wrong technique in product usage process [Unknown]
  - Disturbance in attention [Unknown]
  - Gastritis [Unknown]
  - Swelling [Unknown]
  - Poor peripheral circulation [Unknown]
  - Product use issue [Unknown]
  - Pain [Unknown]
  - Drug ineffective [Unknown]
  - Treatment noncompliance [Unknown]
  - Drug interaction [Unknown]
  - Vision blurred [Unknown]
